FAERS Safety Report 17124075 (Version 1)
Quarter: 2019Q4

REPORT INFORMATION
  Report Type: Spontaneous
  Country: DE (occurrence: DE)
  Receive Date: 20191206
  Receipt Date: 20191206
  Transmission Date: 20200122
  Serious: Yes (Other)
  Sender: FDA-Public Use
  Company Number: DE-ASTRAZENECA-2019SF73054

PATIENT
  Sex: Female

DRUGS (1)
  1. SYMBICORT [Suspect]
     Active Substance: BUDESONIDE\FORMOTEROL FUMARATE DIHYDRATE
     Indication: ASTHMA
     Dosage: 80.0 / 4.5 TWO TIMES A DAY IN THE MORNING AND IN THE EVENING
     Route: 055

REACTIONS (4)
  - Product dose omission [Unknown]
  - Intentional product misuse [Unknown]
  - Cardiac disorder [Unknown]
  - Dyspnoea [Unknown]
